FAERS Safety Report 23142728 (Version 2)
Quarter: 2023Q4

REPORT INFORMATION
  Report Type: Spontaneous
  Country: JP (occurrence: None)
  Receive Date: 20231103
  Receipt Date: 20231128
  Transmission Date: 20240109
  Serious: Yes (Life-Threatening, Hospitalization, Other)
  Sender: FDA-Public Use
  Company Number: 2023A247314

PATIENT
  Age: 53 Year
  Sex: Male

DRUGS (15)
  1. IMFINZI [Suspect]
     Active Substance: DURVALUMAB
     Indication: Bile duct cancer
     Dosage: DOSE UNKNOWN
     Route: 041
     Dates: start: 20230303, end: 2023
  2. CISPLATIN [Suspect]
     Active Substance: CISPLATIN
     Indication: Bile duct cancer
     Dosage: DOSE UNKNOWN UNKNOWN
     Dates: start: 20230303, end: 20230324
  3. GEMCITABINE HYDROCHLORIDE [Concomitant]
     Active Substance: GEMCITABINE HYDROCHLORIDE
     Indication: Bile duct cancer
     Dosage: DOSE UNKNOWN UNKNOWN
     Dates: start: 20230303
  4. LEVOTHYROXINE [Concomitant]
     Active Substance: LEVOTHYROXINE
     Dosage: DOSE UNKNOWN UNKNOWN
  5. AMLODIPINE [Concomitant]
     Active Substance: AMLODIPINE BESYLATE
     Dosage: DOSE UNKNOWN UNKNOWN
  6. ENTECAVIR HYDRATE [Concomitant]
     Dosage: DOSE UNKNOWN UNKNOWN
  7. URSO [Concomitant]
     Active Substance: URSODIOL
     Dosage: DOSE UNKNOWN UNKNOWN
  8. CALONAL [Concomitant]
     Active Substance: ACETAMINOPHEN
     Dosage: DOSE UNKNOWN UNKNOWN
  9. MIYA-BM [Concomitant]
     Active Substance: CLOSTRIDIUM BUTYRICUM SPORES STRAIN M-55
     Dosage: DOSE UNKNOWN UNKNOWN
  10. OXYCODONE [Concomitant]
     Active Substance: OXYCODONE
     Dosage: DOSE UNKNOWN UNKNOWN
  11. DAYVIGO [Concomitant]
     Active Substance: LEMBOREXANT
     Dosage: DOSE UNKNOWN UNKNOWN
  12. SENNOSIDES [Concomitant]
     Active Substance: SENNOSIDES
     Dosage: DOSE UNKNOWN UNKNOWN
  13. DULOXETINE [Concomitant]
     Active Substance: DULOXETINE
     Dosage: DOSE UNKNOWN UNKNOWN
  14. TRAZODONE [Concomitant]
     Active Substance: TRAZODONE HYDROCHLORIDE
     Dosage: DOSE UNKNOWN UNKNOWN
  15. LOPERAMIDE [Concomitant]
     Active Substance: LOPERAMIDE
     Dosage: DOSE UNKNOWN UNKNOWN

REACTIONS (9)
  - Neutrophil count decreased [Unknown]
  - Adrenal insufficiency [Recovering/Resolving]
  - Septic shock [Unknown]
  - Subdural haematoma [Recovering/Resolving]
  - White blood cell count decreased [Unknown]
  - Platelet count decreased [Unknown]
  - Anaphylactic reaction [Unknown]
  - Bacteraemia [Unknown]
  - Headache [Unknown]

NARRATIVE: CASE EVENT DATE: 20230310
